FAERS Safety Report 6042918-2 (Version None)
Quarter: 2009Q1

REPORT INFORMATION
  Report Type: 
  Country: None (occurrence: None)
  Receive Date: 20090119
  Receipt Date: 20090113
  Transmission Date: 20090719
  Serious: Yes (Other)
  Sender: FDA-Public Use
  Company Number: B0537187A

PATIENT
  Age: 73 Year
  Sex: Female

DRUGS (5)
  1. SERETIDE [Suspect]
     Indication: ASTHMA
     Dosage: 2PUFF TWICE PER DAY
     Route: 055
  2. VENTOLIN [Suspect]
     Indication: ASTHMA
     Dosage: 200MCG AS REQUIRED
     Route: 055
  3. BENDROFLUMETHIAZIDE [Suspect]
     Indication: HYPERTENSION
     Dosage: 2.5MG PER DAY
  4. LANSOPRAZOLE [Suspect]
     Dosage: 30MG PER DAY
  5. QUININE [Suspect]
     Dosage: 400MG PER DAY

REACTIONS (5)
  - COUGH [None]
  - HAEMORRHAGE [None]
  - MALAISE [None]
  - NASOPHARYNGITIS [None]
  - OROPHARYNGEAL PAIN [None]
